FAERS Safety Report 26047963 (Version 1)
Quarter: 2025Q4

REPORT INFORMATION
  Report Type: Spontaneous
  Country: CN (occurrence: CN)
  Receive Date: 20251114
  Receipt Date: 20251114
  Transmission Date: 20260118
  Serious: Yes (Hospitalization, Other)
  Sender: PFIZER
  Company Number: CN-PFIZER INC-PV202500131671

PATIENT
  Age: 75 Year
  Sex: Male

DRUGS (1)
  1. LINEZOLID [Suspect]
     Active Substance: LINEZOLID
     Indication: Anti-infective therapy
     Dosage: 600 MG, 1X/DAY
     Route: 048

REACTIONS (4)
  - Oral candidiasis [Unknown]
  - Myelosuppression [Unknown]
  - Haemoglobin decreased [Unknown]
  - Blood lactic acid increased [Unknown]
